FAERS Safety Report 14979318 (Version 1)
Quarter: 2018Q2

REPORT INFORMATION
  Report Type: Spontaneous
  Country: FR (occurrence: FR)
  Receive Date: 20180606
  Receipt Date: 20180606
  Transmission Date: 20180711
  Serious: Yes (Other)
  Sender: FDA-Public Use
  Company Number: FR-JNJFOC-20180540505

PATIENT
  Age: 15 Year
  Sex: Male
  Weight: 51 kg

DRUGS (5)
  1. VENTOLINE [Suspect]
     Active Substance: ALBUTEROL
     Indication: ASTHMA
     Route: 055
  2. INORIAL [Suspect]
     Active Substance: BILASTINE
     Indication: CONJUNCTIVITIS ALLERGIC
     Route: 048
  3. CONCERTA [Suspect]
     Active Substance: METHYLPHENIDATE HYDROCHLORIDE
     Indication: ATTENTION DEFICIT/HYPERACTIVITY DISORDER
     Route: 048
     Dates: start: 201410, end: 201711
  4. MELATONINE [Suspect]
     Active Substance: MELATONIN
     Indication: PRODUCT USED FOR UNKNOWN INDICATION
     Route: 048
     Dates: start: 201607
  5. SYMBICORT [Suspect]
     Active Substance: BUDESONIDE\FORMOTEROL FUMARATE DIHYDRATE
     Indication: ASTHMA
     Route: 055

REACTIONS (2)
  - Raynaud^s phenomenon [Recovered/Resolved]
  - Amaurosis [Recovered/Resolved]

NARRATIVE: CASE EVENT DATE: 201703
